FAERS Safety Report 7056633-X (Version None)
Quarter: 2010Q4

REPORT INFORMATION
  Report Type: 
  Country: None (occurrence: None)
  Receive Date: 20101021
  Receipt Date: 20101014
  Transmission Date: 20110411
  Serious: Yes (Hospitalization)
  Sender: FDA-Public Use
  Company Number: US-GILEAD-2010-0031431

PATIENT
  Sex: Female

DRUGS (8)
  1. LETAIRIS [Suspect]
     Indication: PULMONARY ARTERIAL HYPERTENSION
     Dates: start: 20071030
  2. PREDNISONE [Concomitant]
  3. PROTONIX [Concomitant]
  4. SENSIPAR [Concomitant]
  5. RENAGEL [Concomitant]
  6. ALBUTEROL [Concomitant]
  7. BENADRYL [Concomitant]
  8. DIAZEPAM [Concomitant]

REACTIONS (1)
  - ATRIAL FIBRILLATION [None]
